FAERS Safety Report 9268962 (Version 1)
Quarter: 2013Q2

REPORT INFORMATION
  Report Type: Report from Study
  Country: DE (occurrence: DE)
  Receive Date: 20130503
  Receipt Date: 20130503
  Transmission Date: 20140414
  Serious: Yes (Hospitalization)
  Sender: FDA-Public Use
  Company Number: DE-BIOGENIDEC-2013BI038012

PATIENT
  Age: 32 Year
  Sex: Female

DRUGS (5)
  1. TYSABRI [Suspect]
     Indication: MULTIPLE SCLEROSIS
     Route: 042
     Dates: start: 20080602
  2. VALPROAT [Concomitant]
     Indication: AFFECTIVE DISORDER
  3. DULOXETINE [Concomitant]
     Indication: ANTIDEPRESSANT THERAPY
  4. MEDROXYPROGESTERONE ACETATE [Concomitant]
     Indication: HORMONE THERAPY
  5. L-THYROXIN [Concomitant]
     Indication: THYROID FUNCTION TEST
     Dates: start: 20121206

REACTIONS (1)
  - Goitre [Recovered/Resolved]
